FAERS Safety Report 18091946 (Version 1)
Quarter: 2020Q3

REPORT INFORMATION
  Report Type: Spontaneous
  Country: US (occurrence: US)
  Receive Date: 20200729
  Receipt Date: 20200729
  Transmission Date: 20201103
  Serious: Yes (Disabling)
  Sender: FDA-Public Use
  Company Number: None

PATIENT
  Age: 24 Year
  Sex: Male
  Weight: 69.75 kg

DRUGS (4)
  1. CLONAZEPAM. [Concomitant]
     Active Substance: CLONAZEPAM
  2. MIRTAZAPINE. [Concomitant]
     Active Substance: MIRTAZAPINE
  3. KRATOM [Concomitant]
     Active Substance: HERBALS\MITRAGYNINE
  4. SERTRALINE HCL 50MG [Suspect]
     Active Substance: SERTRALINE HYDROCHLORIDE
     Indication: DEPRESSION
     Dosage: ?          QUANTITY:1 TABLET(S);?
     Route: 048
     Dates: start: 20200526, end: 20200707

REACTIONS (3)
  - Sexual dysfunction [None]
  - Premature ejaculation [None]
  - Disturbance in sexual arousal [None]

NARRATIVE: CASE EVENT DATE: 20200715
